FAERS Safety Report 6302819-9 (Version None)
Quarter: 2009Q3

REPORT INFORMATION
  Report Type: 
  Country: None (occurrence: None)
  Receive Date: 20090810
  Receipt Date: 20090805
  Transmission Date: 20100115
  Serious: Yes (Hospitalization)
  Sender: FDA-Public Use
  Company Number: FR-BRISTOL-MYERS SQUIBB COMPANY-14731145

PATIENT
  Age: 59 Year
  Sex: Male

DRUGS (10)
  1. APROVEL [Suspect]
     Indication: HYPERTENSION
     Route: 048
  2. DETENSIEL [Suspect]
     Indication: HYPERTENSION
     Route: 048
  3. KARDEGIC [Concomitant]
  4. ATORVASTATIN CALCIUM [Concomitant]
  5. DIFFU-K [Concomitant]
  6. LEVOTHYROX [Concomitant]
  7. HYDROCORTISONE [Concomitant]
  8. MINIRIN [Concomitant]
  9. TRILEPTAL [Concomitant]
  10. METFORMIN [Concomitant]

REACTIONS (5)
  - FALL [None]
  - LOSS OF CONSCIOUSNESS [None]
  - ORTHOSTATIC HYPOTENSION [None]
  - TRAUMATIC BRAIN INJURY [None]
  - VERTIGO [None]
